FAERS Safety Report 5127102-9 (Version None)
Quarter: 2006Q4

REPORT INFORMATION
  Report Type: 
  Country: None (occurrence: None)
  Receive Date: 20061013
  Receipt Date: 20061004
  Transmission Date: 20070319
  Serious: Yes (Hospitalization, Other)
  Sender: FDA-Public Use
  Company Number: US-JNJFOC-20060900159

PATIENT
  Sex: Female
  Weight: 57.15 kg

DRUGS (9)
  1. DOXIL [Suspect]
     Route: 042
  2. DOXIL [Suspect]
     Indication: OVARIAN CANCER
     Route: 042
  3. AVAPRO [Concomitant]
     Indication: DRUG USE FOR UNKNOWN INDICATION
  4. DILAUDID [Concomitant]
     Indication: PAIN
  5. ATIVAN [Concomitant]
  6. PHENERGAN [Concomitant]
     Indication: NAUSEA
  7. ZOFRAN [Concomitant]
     Indication: NAUSEA
     Dosage: TAKEN DAY OF CHEMO
  8. EMEND [Concomitant]
     Indication: DRUG USE FOR UNKNOWN INDICATION
     Dosage: TAKEN DAY OF CHEMO AND 2 DAYS FOLLOWING CHEMO
  9. ELMIRON [Concomitant]
     Indication: CYSTITIS

REACTIONS (4)
  - CHILLS [None]
  - CYSTITIS INTERSTITIAL [None]
  - DEHYDRATION [None]
  - PYREXIA [None]
